FAERS Safety Report 4425671-5 (Version None)
Quarter: 2004Q3

REPORT INFORMATION
  Report Type: 
  Country: None (occurrence: None)
  Receive Date: 20040716
  Receipt Date: 20031010
  Transmission Date: 20050211
  Serious: Yes (Hospitalization)
  Sender: FDA-Public Use
  Company Number: 200662

PATIENT
  Age: 71 Year
  Sex: Male
  Weight: 97.5 kg

DRUGS (2)
  1. TNKASE [Suspect]
     Indication: ACUTE MYOCARDIAL INFARCTION
     Dosage: 50 MG, SINGLE, IV BOLUS
     Route: 040
     Dates: start: 20030411, end: 20030411
  2. LOVENOX [Concomitant]

REACTIONS (1)
  - DRUG INEFFECTIVE [None]
